FAERS Safety Report 16011243 (Version 1)
Quarter: 2019Q1

REPORT INFORMATION
  Report Type: Spontaneous
  Country: US (occurrence: US)
  Receive Date: 20190130
  Receipt Date: 20190130
  Transmission Date: 20190418
  Serious: No
  Sender: FDA-Public Use
  Company Number: None

PATIENT
  Age: 43 Year
  Sex: Female

DRUGS (1)
  1. TEMOZOLOMIDE 180MG CAP [Suspect]
     Active Substance: TEMOZOLOMIDE
     Route: 048
     Dates: start: 201901

REACTIONS (4)
  - Viral infection [None]
  - Oedema peripheral [None]
  - Bacterial infection [None]
  - Wound [None]

NARRATIVE: CASE EVENT DATE: 20190130
